FAERS Safety Report 22348260 (Version 2)
Quarter: 2023Q2

REPORT INFORMATION
  Report Type: Spontaneous
  Country: CA (occurrence: CA)
  Receive Date: 20230522
  Receipt Date: 20230628
  Transmission Date: 20230721
  Serious: Yes (Other)
  Sender: FDA-Public Use
  Company Number: CA-CELLTRION INC.-2023CA009418

PATIENT

DRUGS (6)
  1. INFLECTRA [Suspect]
     Active Substance: INFLIXIMAB-DYYB
     Indication: Rheumatoid arthritis
     Dosage: 400 MG (ON WEEK 0) EVERY 8 WEEKS
     Route: 042
     Dates: start: 20230508
  2. INFLECTRA [Suspect]
     Active Substance: INFLIXIMAB-DYYB
     Dosage: 400 MG (3MG/KG),  EVERY 8 WEEKS,
     Route: 042
     Dates: start: 20230523
  3. INFLECTRA [Suspect]
     Active Substance: INFLIXIMAB-DYYB
     Dosage: 400 MG (3MG/KG),  EVERY 8 WEEKS,
     Route: 042
     Dates: start: 20230523
  4. INFLECTRA [Suspect]
     Active Substance: INFLIXIMAB-DYYB
     Dosage: 400 MG, EVERY 8 WEEKS (WEEKS 6 DOSE)
     Route: 042
     Dates: start: 20230619
  5. SULFASALAZINE [Concomitant]
     Active Substance: SULFASALAZINE
     Indication: Rheumatoid arthritis
     Dosage: 1000 MG FOR 15-16 YEARS
  6. SULFASALAZINE [Concomitant]
     Active Substance: SULFASALAZINE
     Dosage: RESTARTED
     Dates: start: 202303

REACTIONS (7)
  - Blood pressure increased [Unknown]
  - Vomiting [Recovered/Resolved]
  - Ocular hyperaemia [Not Recovered/Not Resolved]
  - Dry eye [Not Recovered/Not Resolved]
  - Condition aggravated [Not Recovered/Not Resolved]
  - Off label use [Unknown]
  - Off label use [Unknown]

NARRATIVE: CASE EVENT DATE: 20230101
